FAERS Safety Report 5259388-4 (Version None)
Quarter: 2007Q1

REPORT INFORMATION
  Report Type: 
  Country: None (occurrence: None)
  Receive Date: 20070305
  Receipt Date: 20070220
  Transmission Date: 20070707
  Serious: Yes (Other)
  Sender: FDA-Public Use
  Company Number: OSCN-PR-0701L-0005

PATIENT
  Age: 19 Year
  Sex: Male

DRUGS (15)
  1. OMNISCAN [Suspect]
     Indication: DRUG USE FOR UNKNOWN INDICATION
     Dosage: THIRTEEN ADMINISTRATIONS
  2. SEVELAMER [Concomitant]
  3. PANCRELIPASE [Concomitant]
  4. PREDNISONE [Concomitant]
  5. NEPHRO-VITE [Concomitant]
  6. FLUOXETINE [Concomitant]
  7. SODIUM BICARBONATE [Concomitant]
  8. GABAPENTIN [Concomitant]
  9. HEPARIN (ENOXAPRARIN) [Concomitant]
  10. CETIRIZINE HCL [Concomitant]
  11. METOCLOPRAMIDE [Concomitant]
  12. LANSOPRZOLE [Concomitant]
  13. FOLIC ACID [Concomitant]
  14. CYANOCOBALAMIN (VITAMIN B12) [Concomitant]
  15. EPOGEN [Concomitant]

REACTIONS (1)
  - NEPHROGENIC FIBROSING DERMOPATHY [None]
